FAERS Safety Report 9680528 (Version 2)
Quarter: 2013Q4

REPORT INFORMATION
  Report Type: Spontaneous
  Country: US (occurrence: US)
  Receive Date: 20131111
  Receipt Date: 20131127
  Transmission Date: 20140711
  Serious: No
  Sender: FDA-Public Use
  Company Number: US-PFIZER INC-2013320830

PATIENT
  Age: 38 Year
  Sex: Male
  Weight: 104 kg

DRUGS (2)
  1. LYRICA [Suspect]
     Indication: SCIATICA
     Dosage: 150 MG, EVERY 8 HOUR
     Dates: start: 201209, end: 20131103
  2. ATENOLOL [Concomitant]
     Indication: HYPERTENSION
     Dosage: 100 MG, DAILY

REACTIONS (1)
  - Blood cholesterol increased [Unknown]
